FAERS Safety Report 7941422-1 (Version None)
Quarter: 2011Q4

REPORT INFORMATION
  Report Type: 
  Country: None (occurrence: None)
  Receive Date: 20111128
  Receipt Date: 20111114
  Transmission Date: 20120403
  Serious: No
  Sender: FDA-Public Use
  Company Number: US-B.I. PHARMACEUTICALS,INC./RIDGEFIELD-2011-BP-26204BP

PATIENT
  Sex: Male

DRUGS (1)
  1. ATROVENT HFA [Suspect]
     Indication: SINUS CONGESTION
     Route: 055
     Dates: start: 20111113, end: 20111113

REACTIONS (1)
  - DRY MOUTH [None]
